FAERS Safety Report 11437354 (Version 1)
Quarter: 2015Q3

REPORT INFORMATION
  Report Type: Spontaneous
  Country: US (occurrence: US)
  Receive Date: 20150821
  Receipt Date: 20150821
  Transmission Date: 20151125
  Serious: Yes (Hospitalization)
  Sender: FDA-Public Use
  Company Number: US-ELI_LILLY_AND_COMPANY-US200704003422

PATIENT
  Sex: Male

DRUGS (5)
  1. SOMA [Concomitant]
     Active Substance: CARISOPRODOL
  2. FENTANYL. [Concomitant]
     Active Substance: FENTANYL
  3. MARIJUANA [Concomitant]
     Active Substance: CANNABIS SATIVA SUBSP. INDICA TOP
  4. CYMBALTA [Suspect]
     Active Substance: DULOXETINE HYDROCHLORIDE
     Dosage: 60 MG, UNK
  5. ULTRAM [Concomitant]
     Active Substance: TRAMADOL HYDROCHLORIDE

REACTIONS (3)
  - Disorientation [Unknown]
  - Belligerence [Unknown]
  - Seizure [Unknown]
